FAERS Safety Report 22635340 (Version 1)
Quarter: 2023Q2

REPORT INFORMATION
  Report Type: Spontaneous
  Country: US (occurrence: None)
  Receive Date: 20230622
  Receipt Date: 20230622
  Transmission Date: 20230721
  Serious: Yes (Other)
  Sender: FDA-Public Use
  Company Number: None

PATIENT
  Age: 24 Year
  Sex: Female
  Weight: 111.15 kg

DRUGS (1)
  1. LILETTA [Suspect]
     Active Substance: LEVONORGESTREL

REACTIONS (2)
  - Pain [None]
  - Embedded device [None]

NARRATIVE: CASE EVENT DATE: 20230620
